FAERS Safety Report 6911317-0 (Version None)
Quarter: 2010Q3

REPORT INFORMATION
  Report Type: 
  Country: None (occurrence: None)
  Receive Date: 20100719
  Receipt Date: 20100421
  Transmission Date: 20110219
  Serious: Yes (Hospitalization, Other)
  Sender: FDA-Public Use
  Company Number: US-WYE-H14718910

PATIENT
  Age: 88 Year
  Sex: Female
  Weight: 73.096 kg

DRUGS (14)
  1. ADVIL [Suspect]
     Indication: PAIN
     Dosage: ORAL
     Route: 048
  2. DETROL [Suspect]
     Indication: HYPERTONIC BLADDER
     Dosage: 4 MG 1X PER DAY, ORAL
     Route: 048
     Dates: start: 20091009, end: 20091201
  3. ACETAMINOPHEN [Concomitant]
  4. HYDROCHLOROTHIAZIDE [Concomitant]
  5. TRAVATAN [Concomitant]
  6. LUMIGAN (BIMATROPROST) [Concomitant]
  7. PROCARDIA [Concomitant]
  8. CENTRUM ULTRA WOMEN'S (MULTIVITAMIN/MULTIMINERAL) [Concomitant]
  9. VITAMIN D [Concomitant]
  10. OS-CAL (CALCIUM/ERGOCALCIFEROL) [Concomitant]
  11. IRON (IRON) [Concomitant]
  12. ZESTRIL [Concomitant]
  13. LEVOTHYROXINE SODIUM [Concomitant]
  14. PRILOSEC (OMEPRAZOLE) [Concomitant]

REACTIONS (1)
  - GASTRIC ULCER [None]
